FAERS Safety Report 5690072-9 (Version None)
Quarter: 2008Q2

REPORT INFORMATION
  Report Type: 
  Country: None (occurrence: None)
  Receive Date: 20080401
  Receipt Date: 20080325
  Transmission Date: 20081010
  Serious: Yes (Other)
  Sender: FDA-Public Use
  Company Number: PHBS2008AR03688

PATIENT
  Sex: Female

DRUGS (4)
  1. DIOVAN [Suspect]
     Dosage: 80 MG/DAY
     Route: 048
  2. DIOVAN [Suspect]
     Dosage: 160 MG/DAY
     Route: 048
  3. ATENOLOL [Concomitant]
  4. ADALAT SL - SLOW RELEASE [Concomitant]

REACTIONS (3)
  - ASTHENOPIA [None]
  - HYPERTENSIVE CRISIS [None]
  - LIP DISORDER [None]
